FAERS Safety Report 10868834 (Version 1)
Quarter: 2015Q1

REPORT INFORMATION
  Report Type: Spontaneous
  Country: CA (occurrence: CA)
  Receive Date: 20150225
  Receipt Date: 20150225
  Transmission Date: 20150721
  Serious: Yes (Other)
  Sender: FDA-Public Use
  Company Number: CA-PFIZER INC-2015069027

PATIENT
  Sex: Female

DRUGS (1)
  1. CHAMPIX [Suspect]
     Active Substance: VARENICLINE TARTRATE
     Indication: SMOKING CESSATION THERAPY
     Dosage: UNK

REACTIONS (9)
  - Nervousness [Not Recovered/Not Resolved]
  - Violence-related symptom [Recovered/Resolved]
  - Depression [Recovered/Resolved]
  - Fear [Not Recovered/Not Resolved]
  - Anxiety [Not Recovered/Not Resolved]
  - Agitation [Recovered/Resolved]
  - Self-injurious ideation [Recovered/Resolved]
  - Condition aggravated [Not Recovered/Not Resolved]
  - Anger [Recovered/Resolved]
